FAERS Safety Report 5575544-X (Version None)
Quarter: 2007Q4

REPORT INFORMATION
  Report Type: 
  Country: None (occurrence: None)
  Receive Date: 20071227
  Receipt Date: 20071217
  Transmission Date: 20080405
  Serious: Yes (Death, Hospitalization)
  Sender: FDA-Public Use
  Company Number: JP-MERCK-0711USA02122

PATIENT
  Age: 41 Year
  Sex: Male

DRUGS (25)
  1. PEPCID [Suspect]
     Route: 041
     Dates: start: 20071005
  2. SEPAMIT R [Concomitant]
     Route: 048
     Dates: start: 20070907
  3. TORSEMIDE [Concomitant]
     Route: 048
     Dates: start: 20070912
  4. VANCOMYCIN HYDROCHLORIDE [Concomitant]
     Route: 048
     Dates: start: 20071024
  5. BIOFERMIN R [Concomitant]
     Route: 048
     Dates: start: 20070907
  6. GASMOTIN [Concomitant]
     Route: 048
     Dates: start: 20070912
  7. MAINTATE [Concomitant]
     Route: 048
     Dates: start: 20070907
  8. ATELEC [Concomitant]
     Route: 048
     Dates: start: 20070920
  9. CARDENALIN [Concomitant]
     Route: 048
     Dates: start: 20070920
  10. LYSOZYME CHLORIDE [Concomitant]
     Route: 048
     Dates: start: 20070919
  11. MUSCULAX [Concomitant]
     Route: 041
     Dates: start: 20071005
  12. LASIX [Concomitant]
     Route: 041
     Dates: start: 20071005
  13. AMINO ACIDS (UNSPECIFIED) [Concomitant]
     Route: 041
     Dates: start: 20071005
  14. DEXTROSE [Concomitant]
     Route: 041
     Dates: start: 20071005
  15. ARGATROBAN [Concomitant]
     Route: 041
     Dates: start: 20071005
  16. SOLU-MEDROL [Concomitant]
     Route: 041
     Dates: start: 20071005
  17. DOBUTAMINE HYDROCHLORIDE [Concomitant]
     Route: 041
     Dates: start: 20071005
  18. METOCLOPRAMIDE [Concomitant]
     Route: 041
     Dates: start: 20071005
  19. [THERAPY UNSPECIFIED] [Concomitant]
     Route: 041
     Dates: start: 20071005
  20. CYSTEINE AND GLYCINE AND GLYCYRRHIZIN [Concomitant]
     Route: 041
     Dates: start: 20071005
  21. HEPARIN SODIUM [Concomitant]
     Route: 065
     Dates: start: 20071005
  22. PROPOFOL [Concomitant]
     Route: 065
     Dates: start: 20071005
  23. SODIUM CHLORIDE [Concomitant]
     Route: 041
     Dates: start: 20071005
  24. VITAMINS (UNSPECIFIED) [Concomitant]
     Route: 065
     Dates: start: 20071005
  25. INOVAN [Concomitant]
     Route: 065
     Dates: start: 20071005

REACTIONS (2)
  - DEATH [None]
  - PANCYTOPENIA [None]
